FAERS Safety Report 7814614-X (Version None)
Quarter: 2011Q4

REPORT INFORMATION
  Report Type: 
  Country: None (occurrence: None)
  Receive Date: 20111014
  Receipt Date: 20111006
  Transmission Date: 20120403
  Serious: Yes (Hospitalization)
  Sender: FDA-Public Use
  Company Number: US-AMGEN-USANI2011051832

PATIENT
  Age: 49 Year
  Sex: Female

DRUGS (4)
  1. BENICAR [Concomitant]
  2. DOVONEX [Concomitant]
     Dosage: 60 G, UNK
  3. CLOBETASOL PROPIONATE [Concomitant]
     Route: 061
  4. ETANERCEPT [Suspect]
     Indication: PSORIASIS
     Dosage: 50 MG, QWK
     Route: 058
     Dates: start: 20070219

REACTIONS (1)
  - THYROID CANCER [None]
